FAERS Safety Report 5253995-0 (Version None)
Quarter: 2007Q1

REPORT INFORMATION
  Report Type: 
  Country: None (occurrence: None)
  Receive Date: 20070302
  Receipt Date: 20070220
  Transmission Date: 20070707
  Serious: Yes (Hospitalization)
  Sender: FDA-Public Use
  Company Number: FI-JNJFOC-20070204951

PATIENT
  Sex: Male

DRUGS (4)
  1. CONCERTA [Suspect]
     Route: 048
     Dates: start: 20070115, end: 20070125
  2. CONCERTA [Suspect]
     Indication: DRUG ABUSER
     Route: 048
     Dates: start: 20070115, end: 20070125
  3. DIAPAM [Concomitant]
     Route: 048
  4. NORMISON [Concomitant]
     Route: 048

REACTIONS (6)
  - BRAIN CONTUSION [None]
  - CEREBRAL HAEMATOMA [None]
  - HYPERSOMNIA [None]
  - LUNG INJURY [None]
  - RIB FRACTURE [None]
  - SPINAL FRACTURE [None]
